FAERS Safety Report 8482248-2 (Version None)
Quarter: 2012Q3

REPORT INFORMATION
  Report Type: 
  Country: None (occurrence: None)
  Receive Date: 20120702
  Receipt Date: 20120625
  Transmission Date: 20120928
  Serious: Yes (Other)
  Sender: FDA-Public Use
  Company Number: FR-PFIZER INC-2012153226

PATIENT
  Age: 68 Year
  Sex: Male

DRUGS (2)
  1. SUNITINIB MALATE [Suspect]
     Indication: METASTATIC RENAL CELL CARCINOMA
     Dosage: 50 MG/DAY (4 WEEKS OUT OF 6)
  2. SUNITINIB MALATE [Suspect]
     Dosage: 37.5 MG/DAY (4 WEEKS OUT OF 6)

REACTIONS (1)
  - PNEUMATOSIS INTESTINALIS [None]
